FAERS Safety Report 4706589-7 (Version None)
Quarter: 2005Q3

REPORT INFORMATION
  Report Type: 
  Country: None (occurrence: None)
  Receive Date: 20050705
  Receipt Date: 20050222
  Transmission Date: 20060218
  Serious: Yes (Other)
  Sender: FDA-Public Use
  Company Number: 200510699FR

PATIENT
  Age: 44 Year
  Sex: Female

DRUGS (5)
  1. ARAVA [Suspect]
     Indication: RHEUMATOID ARTHRITIS
     Route: 048
     Dates: start: 20011001
  2. REMICADE [Suspect]
     Indication: RHEUMATOID ARTHRITIS
     Route: 042
  3. CORTANCYL [Concomitant]
     Route: 048
  4. ACETAMINOPHEN [Concomitant]
  5. APRANAX [Concomitant]

REACTIONS (1)
  - ERYSIPELAS [None]
